FAERS Safety Report 9508632 (Version 2)
Quarter: 2013Q3

REPORT INFORMATION
  Report Type: Spontaneous
  Country: CA (occurrence: CA)
  Receive Date: 20130909
  Receipt Date: 20130909
  Transmission Date: 20140515
  Serious: Yes (Hospitalization)
  Sender: FDA-Public Use
  Company Number: CA-BAXTER-2013BAX033596

PATIENT
  Age: 73 Year
  Sex: Female

DRUGS (4)
  1. DIANEAL PD4 SOLUTION WITH 2.5% DEXTROSE AND 2.5 MEQ/L CALCIUM [Suspect]
     Indication: PERITONEAL DIALYSIS
     Route: 033
  2. DIANEAL PD4 SOLUTION WITH 2.5% DEXTROSE AND 2.5 MEQ/L CALCIUM [Suspect]
     Route: 033
  3. EXTRANEAL [Suspect]
     Indication: PERITONEAL DIALYSIS
     Route: 033
  4. INSULIN [Concomitant]
     Indication: DIABETES MELLITUS

REACTIONS (2)
  - Abdominal wound dehiscence [Recovered/Resolved]
  - Catheter site infection [Recovering/Resolving]
